FAERS Safety Report 7131079-4 (Version None)
Quarter: 2010Q4

REPORT INFORMATION
  Report Type: 
  Country: None (occurrence: None)
  Receive Date: 20101201
  Receipt Date: 20101118
  Transmission Date: 20110411
  Serious: Yes (Hospitalization)
  Sender: FDA-Public Use
  Company Number: US-BRISTOL-MYERS SQUIBB COMPANY-15264112

PATIENT
  Age: 69 Year
  Sex: Female
  Weight: 54 kg

DRUGS (13)
  1. CETUXIMAB [Suspect]
     Indication: NON-SMALL CELL LUNG CANCER
     Route: 042
     Dates: start: 20100722, end: 20100813
  2. CARBOPLATIN [Suspect]
     Indication: NON-SMALL CELL LUNG CANCER
     Route: 042
     Dates: start: 20100722, end: 20100813
  3. GEMCITABINE [Suspect]
     Indication: NON-SMALL CELL LUNG CANCER
     Route: 042
     Dates: start: 20100722, end: 20100813
  4. LOVENOX [Concomitant]
     Indication: DEEP VEIN THROMBOSIS
     Route: 058
     Dates: start: 20100726, end: 20100811
  5. LOVENOX [Concomitant]
     Indication: PULMONARY EMBOLISM
     Route: 058
     Dates: start: 20100726, end: 20100811
  6. ATIVAN [Concomitant]
     Dates: start: 20100802
  7. AMLODIPINE [Concomitant]
     Route: 065
  8. ACETAMINOPHEN [Concomitant]
     Route: 065
  9. DOCUSATE [Concomitant]
  10. GABAPENTIN [Concomitant]
     Route: 065
  11. MAGNESIUM SULFATE [Concomitant]
  12. POTASSIUM CHLORIDE [Concomitant]
  13. FUROSEMIDE [Concomitant]

REACTIONS (1)
  - ARTERIAL THROMBOSIS [None]
